FAERS Safety Report 9307763 (Version 1)
Quarter: 2013Q2

REPORT INFORMATION
  Report Type: Spontaneous
  Country: US (occurrence: US)
  Receive Date: 20130524
  Receipt Date: 20130524
  Transmission Date: 20140414
  Serious: Yes (Other)
  Sender: FDA-Public Use
  Company Number: 2013SP001449

PATIENT
  Age: 10 Year
  Sex: Male
  Weight: 29 kg

DRUGS (6)
  1. ALVESCO INHALATION AEROSOL [Suspect]
     Indication: ASTHMA
     Route: 055
     Dates: start: 20130423, end: 20130425
  2. MULTIVITAMINS [Concomitant]
     Indication: PRODUCT USED FOR UNKNOWN INDICATION
     Route: 048
  3. ZADITOR                            /00495201/ [Concomitant]
     Indication: HYPERSENSITIVITY
  4. NASONEX [Concomitant]
     Indication: HYPERSENSITIVITY
  5. PROVENTIL                          /00139501/ [Concomitant]
     Indication: INHALATION THERAPY
     Route: 055
  6. PROVENTIL                          /00139501/ [Concomitant]
     Indication: INHALATION THERAPY
     Route: 055

REACTIONS (4)
  - Heart rate increased [Recovered/Resolved]
  - Dyspnoea [Recovered/Resolved]
  - Restlessness [Recovered/Resolved]
  - Decreased appetite [Recovered/Resolved]
